FAERS Safety Report 5564892-5 (Version None)
Quarter: 2007Q4

REPORT INFORMATION
  Report Type: 
  Country: None (occurrence: None)
  Receive Date: 20071218
  Receipt Date: 20071211
  Transmission Date: 20080405
  Serious: Yes (Hospitalization)
  Sender: FDA-Public Use
  Company Number: US-JNJFOC-20071203607

PATIENT
  Sex: Female

DRUGS (3)
  1. RISPERDAL [Suspect]
     Indication: HYPERTENSION
  2. ZYPREXA [Suspect]
     Indication: HYPERTENSION
  3. DEPAKOTE [Suspect]
     Indication: HYPERTENSION

REACTIONS (4)
  - HOSPITALISATION [None]
  - INSOMNIA [None]
  - LOSS OF CONSCIOUSNESS [None]
  - NAUSEA [None]
